FAERS Safety Report 17705592 (Version 1)
Quarter: 2020Q2

REPORT INFORMATION
  Report Type: Spontaneous
  Country: GB (occurrence: GB)
  Receive Date: 20200424
  Receipt Date: 20200424
  Transmission Date: 20200714
  Serious: Yes (Other)
  Sender: FDA-Public Use
  Company Number: NVSC2020GB110057

PATIENT
  Age: 80 Year

DRUGS (2)
  1. MAXITROL [Suspect]
     Active Substance: DEXAMETHASONE\NEOMYCIN SULFATE\POLYMYXIN B SULFATE
     Indication: OPHTHALMIC HERPES ZOSTER
     Dosage: UNK, QID (FOUR TIMES A DAY)
     Route: 061
     Dates: start: 20191004, end: 20191007
  2. VIRGAN [Suspect]
     Active Substance: GANCICLOVIR
     Indication: OPHTHALMIC HERPES ZOSTER
     Dosage: 0.6 %, QD
     Route: 061
     Dates: start: 20191004, end: 20191007

REACTIONS (2)
  - Eye pain [Recovered/Resolved]
  - Eye irritation [Recovered/Resolved]

NARRATIVE: CASE EVENT DATE: 20191004
